FAERS Safety Report 24611488 (Version 1)
Quarter: 2024Q4

REPORT INFORMATION
  Report Type: Report from Study
  Country: US (occurrence: US)
  Receive Date: 20241113
  Receipt Date: 20241113
  Transmission Date: 20250115
  Serious: No
  Sender: SANDOZ
  Company Number: US-SANDOZ-SDZ2024US093550

PATIENT
  Sex: Male

DRUGS (1)
  1. GLATOPA [Suspect]
     Active Substance: GLATIRAMER ACETATE
     Indication: Multiple sclerosis
     Dosage: 40 MG 3 X WEEKLY, SPACED 48 HOURS APART
     Route: 058
     Dates: start: 20221107

REACTIONS (8)
  - Urticaria [Recovered/Resolved]
  - Injection site induration [Unknown]
  - Injection site haemorrhage [Unknown]
  - Injection site erythema [Unknown]
  - Injection site irritation [Unknown]
  - Injection site pain [Unknown]
  - Product use issue [Unknown]
  - Incorrect dose administered [Unknown]
